FAERS Safety Report 23784440 (Version 1)
Quarter: 2024Q2

REPORT INFORMATION
  Report Type: Spontaneous
  Country: US (occurrence: None)
  Receive Date: 20240425
  Receipt Date: 20240425
  Transmission Date: 20240716
  Serious: No
  Sender: FDA-Public Use
  Company Number: None

PATIENT
  Age: 26 Year
  Sex: Female

DRUGS (1)
  1. ARIPIPRAZOLE [Suspect]
     Active Substance: ARIPIPRAZOLE
     Indication: Tic
     Dosage: OTHER QUANTITY : 1 CAPSULE(S);?
     Route: 048
     Dates: start: 20230406, end: 20231006

REACTIONS (5)
  - Essential tremor [None]
  - Dependence [None]
  - Drug dependence [None]
  - Aggression [None]
  - Alcohol abuse [None]

NARRATIVE: CASE EVENT DATE: 20230625
